FAERS Safety Report 10331252 (Version 2)
Quarter: 2014Q3

REPORT INFORMATION
  Report Type: Spontaneous
  Country: JP (occurrence: JP)
  Receive Date: 20140722
  Receipt Date: 20140914
  Transmission Date: 20150326
  Serious: Yes (Other)
  Sender: FDA-Public Use
  Company Number: JP-SA-2014SA095838

PATIENT
  Age: 76 Year
  Sex: Male

DRUGS (2)
  1. IMMUCYST [Suspect]
     Active Substance: BACILLUS CALMETTE-GUERIN SUBSTRAIN CONNAUGHT LIVE ANTIGEN
     Indication: BLADDER CANCER
     Route: 065
  2. BCG FOR IMMUNOTHERAPY [Suspect]
     Active Substance: BCG VACCINE
     Indication: BLADDER CANCER
     Route: 065

REACTIONS (2)
  - Hepatitis [Recovered/Resolved]
  - Interstitial lung disease [Unknown]
